FAERS Safety Report 16335869 (Version 1)
Quarter: 2019Q2

REPORT INFORMATION
  Report Type: Spontaneous
  Country: US (occurrence: US)
  Receive Date: 20190521
  Receipt Date: 20190521
  Transmission Date: 20190711
  Serious: No
  Sender: FDA-Public Use
  Company Number: US-TEVA-2019-US-1048311

PATIENT
  Sex: Female

DRUGS (1)
  1. LETROZOLE. [Suspect]
     Active Substance: LETROZOLE
     Indication: NEOPLASM MALIGNANT
     Dosage: 2.5MG TABLET BY MOUTH DAILY
     Route: 048
     Dates: start: 20190411, end: 20190424

REACTIONS (6)
  - Erythema [Recovered/Resolved]
  - Burning sensation [Not Recovered/Not Resolved]
  - Feeling hot [Unknown]
  - Allergic reaction to excipient [Unknown]
  - Pruritus [Unknown]
  - Lip swelling [Recovered/Resolved]
